FAERS Safety Report 10052120 (Version 1)
Quarter: 2014Q2

REPORT INFORMATION
  Report Type: Spontaneous
  Country: US (occurrence: None)
  Receive Date: 20140401
  Receipt Date: 20140401
  Transmission Date: 20141212
  Serious: Yes (Other)
  Sender: FDA-Public Use
  Company Number: None

PATIENT
  Age: 52 Year
  Sex: Female
  Weight: 76.2 kg

DRUGS (1)
  1. ESCITALOPRAM OXALATE [Suspect]
     Indication: ANXIETY
     Dosage: 10 MG ONCE DAILY, 10 MG BY MOUTH ONCE DAILY
     Route: 048
     Dates: start: 201101, end: 201103

REACTIONS (3)
  - Abdominal discomfort [None]
  - Product substitution issue [None]
  - Drug effect decreased [None]
